FAERS Safety Report 9750459 (Version 1)
Quarter: 2013Q4

REPORT INFORMATION
  Report Type: Spontaneous
  Country: US (occurrence: US)
  Receive Date: 20131212
  Receipt Date: 20131212
  Transmission Date: 20140711
  Serious: Yes (Other)
  Sender: FDA-Public Use
  Company Number: US-TEVA-397749USA

PATIENT
  Age: 34 Year
  Sex: Female
  Weight: 47.67 kg

DRUGS (3)
  1. PARAGARD 380A [Suspect]
     Indication: CONTRACEPTION
     Route: 015
     Dates: start: 20120810
  2. ALDACTONE [Concomitant]
     Indication: ACNE
  3. METFORMIN [Concomitant]
     Indication: POLYCYSTIC OVARIES

REACTIONS (2)
  - Device dislocation [Unknown]
  - Ovarian cyst [Unknown]
